FAERS Safety Report 5811349-X (Version None)
Quarter: 2008Q3

REPORT INFORMATION
  Report Type: 
  Country: None (occurrence: None)
  Receive Date: 20080711
  Receipt Date: 20080702
  Transmission Date: 20090109
  Serious: Yes (Death, Life-Threatening, Hospitalization, Other)
  Sender: FDA-Public Use
  Company Number: GXKR2007GB08839

PATIENT
  Age: 35 Year
  Sex: Male
  Weight: 70 kg

DRUGS (12)
  1. DIAZEPAM [Suspect]
     Dosage: 4 MG, TID, ORAL
     Route: 048
     Dates: end: 20071005
  2. TEMAZEPAM [Suspect]
     Dosage: 10 MG, UNK, ORAL
     Route: 048
     Dates: end: 20071005
  3. TRAMADOL HCL [Suspect]
     Dosage: 100 MG, PRN, ORAL
     Route: 048
     Dates: end: 20071005
  4. DURAGESIC-100 [Suspect]
     Dosage: 75 UG, OH, TRANSDERMAL
     Route: 062
     Dates: end: 20071005
  5. AMOXICILLIN [Concomitant]
  6. HYOSCINE HBR HYT [Concomitant]
  7. CITALOPRAM HYDROBROMIDE [Concomitant]
  8. CYCLIZINE (CYCLIZINE) [Concomitant]
  9. OMEPRAZOLE [Concomitant]
  10. ACETAMINOPHEN [Concomitant]
  11. TEGRETOL (CARBAMAZEPINE) RECTAL CAPSULE [Concomitant]
  12. IRON (IRON) [Concomitant]

REACTIONS (4)
  - DISEASE PROGRESSION [None]
  - HEPATIC ENCEPHALOPATHY [None]
  - OESOPHAGEAL HAEMORRHAGE [None]
  - TREATMENT NONCOMPLIANCE [None]
